FAERS Safety Report 8859050 (Version 2)
Quarter: 2013Q2

REPORT INFORMATION
  Report Type: Spontaneous
  Country: US (occurrence: US)
  Receive Date: 20121024
  Receipt Date: 20130412
  Transmission Date: 20140414
  Serious: No
  Sender: FDA-Public Use
  Company Number: US-009507513-1210USA000358

PATIENT
  Sex: 0

DRUGS (2)
  1. SAPHRIS [Suspect]
     Route: 048
  2. TEGRETOL [Suspect]
     Dosage: UNK

REACTIONS (1)
  - Adverse reaction [Unknown]
